FAERS Safety Report 10004136 (Version 2)
Quarter: 2014Q2

REPORT INFORMATION
  Report Type: Spontaneous
  Country: DE (occurrence: DE)
  Receive Date: 20140312
  Receipt Date: 20140403
  Transmission Date: 20141212
  Serious: Yes (Other)
  Sender: FDA-Public Use
  Company Number: DE-JNJFOC-20140302122

PATIENT
  Age: 28 Year
  Sex: Male
  Weight: 70 kg

DRUGS (1)
  1. HALDOL [Suspect]
     Indication: PRODUCT USED FOR UNKNOWN INDICATION
     Route: 048
     Dates: start: 20140303, end: 20140303

REACTIONS (7)
  - Oropharyngeal spasm [Recovered/Resolved]
  - Respiratory disorder [Recovered/Resolved]
  - Dysphagia [Recovered/Resolved]
  - Psychomotor hyperactivity [Recovered/Resolved]
  - Salivary hypersecretion [Recovered/Resolved]
  - Dysarthria [Recovered/Resolved]
  - Sensation of foreign body [Recovered/Resolved]
